FAERS Safety Report 5029337-2 (Version None)
Quarter: 2006Q2

REPORT INFORMATION
  Report Type: 
  Country: None (occurrence: None)
  Receive Date: 20060614
  Receipt Date: 20060526
  Transmission Date: 20061013
  Serious: Yes (Death)
  Sender: FDA-Public Use
  Company Number: US200604002426

PATIENT
  Age: 76 Year
  Sex: Male

DRUGS (2)
  1. HUMULIN N [Suspect]
     Dosage: UNK
     Route: 065
  2. HUMULIN R [Suspect]
     Indication: DIABETES MELLITUS
     Dosage: UNK, AS NEEDED, UNK
     Route: 065
     Dates: start: 19690101

REACTIONS (1)
  - BLOOD GLUCOSE INCREASED [None]
